FAERS Safety Report 18417689 (Version 5)
Quarter: 2021Q4

REPORT INFORMATION
  Report Type: Spontaneous
  Country: US (occurrence: US)
  Receive Date: 20201022
  Receipt Date: 20211102
  Transmission Date: 20220303
  Serious: No
  Sender: FDA-Public Use
  Company Number: US-SEATTLE GENETICS-2020SGN02986

PATIENT
  Sex: Female

DRUGS (12)
  1. TUKYSA [Suspect]
     Active Substance: TUCATINIB
     Indication: Breast cancer female
     Dosage: UNK UNK, BID
     Route: 048
  2. TUKYSA [Suspect]
     Active Substance: TUCATINIB
     Dosage: 300MG IN THE AM AND 150MG IN THE PM
     Route: 048
  3. TUKYSA [Suspect]
     Active Substance: TUCATINIB
     Dosage: 300MG IN THE AM AND 150MG IN THE PM
     Route: 048
  4. TUKYSA [Suspect]
     Active Substance: TUCATINIB
     Dosage: UNK
  5. TUKYSA [Suspect]
     Active Substance: TUCATINIB
     Dosage: UNK
  6. TUKYSA [Suspect]
     Active Substance: TUCATINIB
     Dosage: UNK
  7. TUKYSA [Suspect]
     Active Substance: TUCATINIB
     Dosage: UNK
  8. TUKYSA [Suspect]
     Active Substance: TUCATINIB
     Dosage: UNK
     Dates: end: 20210919
  9. AVASTIN [Suspect]
     Active Substance: BEVACIZUMAB
     Indication: Product used for unknown indication
  10. CYMBALTA [Suspect]
     Active Substance: DULOXETINE HYDROCHLORIDE
  11. XELODA [Concomitant]
     Active Substance: CAPECITABINE
     Indication: Breast cancer female
     Dosage: UNK UNK, BID
  12. HERCEPTIN [Concomitant]
     Active Substance: TRASTUZUMAB
     Indication: Breast cancer female

REACTIONS (45)
  - Gastrointestinal disorder [Unknown]
  - Haemorrhoids [Unknown]
  - Fungal infection [Unknown]
  - Dry eye [Unknown]
  - Vitamin D abnormal [Unknown]
  - Balance disorder [Unknown]
  - Urinary tract infection [Unknown]
  - Pain in extremity [Unknown]
  - Blood pressure increased [Unknown]
  - Vitamin D decreased [Unknown]
  - Neuralgia [Unknown]
  - Drug interaction [Unknown]
  - Cystitis [Unknown]
  - Pruritus [Unknown]
  - Taste disorder [Unknown]
  - Dysgeusia [Unknown]
  - Arthropod bite [Unknown]
  - Pain [Unknown]
  - Abdominal pain upper [Unknown]
  - Abdominal pain lower [Unknown]
  - Gait disturbance [Unknown]
  - Ulcer [Unknown]
  - Unevaluable event [Unknown]
  - Sinus disorder [Unknown]
  - Tumour pain [Unknown]
  - Radiotherapy [Unknown]
  - Tinnitus [Unknown]
  - Hypoaesthesia [Unknown]
  - Neoplasm [Unknown]
  - Magnetic resonance imaging head abnormal [Unknown]
  - Bradykinesia [Unknown]
  - Brain cancer metastatic [Unknown]
  - Product use in unapproved indication [Unknown]
  - Intentional product use issue [Unknown]
  - Night sweats [Unknown]
  - Platelet count decreased [Unknown]
  - Fatigue [Unknown]
  - Headache [Unknown]
  - Dehydration [Unknown]
  - Abdominal pain [Unknown]
  - Rash [Unknown]
  - Stomatitis [Unknown]
  - Epistaxis [Unknown]
  - Diarrhoea [Not Recovered/Not Resolved]
  - Nausea [Unknown]
